FAERS Safety Report 5546803-1 (Version None)
Quarter: 2007Q4

REPORT INFORMATION
  Report Type: 
  Country: None (occurrence: None)
  Receive Date: 20071211
  Receipt Date: 20071211
  Transmission Date: 20080405
  Serious: Yes (Other)
  Sender: FDA-Public Use
  Company Number: A0698228A

PATIENT
  Sex: Female

DRUGS (2)
  1. CITRUCEL [Suspect]
     Indication: IRRITABLE BOWEL SYNDROME
     Route: 048
  2. DILANTIN [Suspect]
     Route: 048
     Dates: start: 20070701

REACTIONS (3)
  - CONVULSION [None]
  - DRUG INTERACTION [None]
  - IRRITABILITY [None]
